FAERS Safety Report 24023429 (Version 1)
Quarter: 2024Q2

REPORT INFORMATION
  Report Type: Report from Study
  Country: RO (occurrence: RO)
  Receive Date: 20240627
  Receipt Date: 20240627
  Transmission Date: 20240716
  Serious: No
  Sender: FDA-Public Use
  Company Number: RO-ROCHE-3532314

PATIENT
  Age: 53 Year
  Sex: Female
  Weight: 54.0 kg

DRUGS (1)
  1. PHESGO [Suspect]
     Active Substance: HYALURONIDASE-ZZXF\PERTUZUMAB\TRASTUZUMAB
     Indication: Breast neoplasm
     Dosage: PHESGO 600 MG/600 MG SOLUTION FOR INJECTION * 1 VIAL 10 ML
     Route: 058

REACTIONS (1)
  - Hypoaesthesia [Unknown]
